FAERS Safety Report 18970740 (Version 2)
Quarter: 2021Q1

REPORT INFORMATION
  Report Type: Spontaneous
  Country: IL (occurrence: IL)
  Receive Date: 20210304
  Receipt Date: 20210316
  Transmission Date: 20210420
  Serious: Yes (Hospitalization, Other)
  Sender: FDA-Public Use
  Company Number: IL-ALXN-A202102863

PATIENT
  Age: 29 Year
  Sex: Female

DRUGS (2)
  1. SOLIRIS [Suspect]
     Active Substance: ECULIZUMAB
     Indication: ATYPICAL HAEMOLYTIC URAEMIC SYNDROME
     Dosage: UNK
     Route: 065
  2. METHYLPREDNISOLONE. [Concomitant]
     Active Substance: METHYLPREDNISOLONE
     Indication: ATYPICAL HAEMOLYTIC URAEMIC SYNDROME
     Route: 065

REACTIONS (8)
  - Seizure [Unknown]
  - Headache [Unknown]
  - Neurological examination abnormal [Unknown]
  - Progressive multifocal leukoencephalopathy [Unknown]
  - Pyrexia [Unknown]
  - Posterior reversible encephalopathy syndrome [Unknown]
  - Acute disseminated encephalomyelitis [Unknown]
  - Hypertension [Unknown]
